FAERS Safety Report 23651954 (Version 2)
Quarter: 2024Q3

REPORT INFORMATION
  Report Type: Spontaneous
  Country: US (occurrence: US)
  Receive Date: 20240320
  Receipt Date: 20240718
  Transmission Date: 20241017
  Serious: Yes (Hospitalization)
  Sender: NOVARTIS
  Company Number: US-002147023-NVSC2024US054767

PATIENT
  Sex: Female

DRUGS (11)
  1. ENTRESTO [Suspect]
     Active Substance: SACUBITRIL\VALSARTAN
     Indication: Product used for unknown indication
     Dosage: UNK
     Route: 065
  2. OFEV [Suspect]
     Active Substance: NINTEDANIB
     Indication: Idiopathic pulmonary fibrosis
     Dosage: 150 MG, Q12H
     Route: 048
     Dates: start: 20220516, end: 202308
  3. OFEV [Suspect]
     Active Substance: NINTEDANIB
     Indication: Pulmonary hypertension
     Dosage: 150 MG, Q12H
     Route: 048
     Dates: start: 202304
  4. OFEV [Suspect]
     Active Substance: NINTEDANIB
     Indication: Lung disorder
     Dosage: UNK
     Route: 065
     Dates: end: 202301
  5. OFEV [Suspect]
     Active Substance: NINTEDANIB
     Indication: Hypoxia
  6. OFEV [Suspect]
     Active Substance: NINTEDANIB
     Indication: Pulmonary fibrosis
  7. TYVASO [Concomitant]
     Active Substance: TREPROSTINIL
     Indication: Pulmonary arterial hypertension
     Dosage: UNK, Q6H (9 BREATHS)
     Route: 055
     Dates: start: 202303, end: 20230530
  8. TYVASO [Concomitant]
     Active Substance: TREPROSTINIL
     Dosage: UNK, Q6H (7 BREATHS)
     Route: 055
  9. TYVASO [Concomitant]
     Active Substance: TREPROSTINIL
     Dosage: UNK, Q6H (8 BREATHS)
     Route: 055
     Dates: start: 202305
  10. TYVASO [Concomitant]
     Active Substance: TREPROSTINIL
     Dosage: UNK, Q6H (11 BREATHS)
     Route: 055
  11. TYVASO [Concomitant]
     Active Substance: TREPROSTINIL
     Indication: Pulmonary arterial hypertension
     Dosage: UNK, Q6H (INHALE 12 BREATHS 4 TIMES DAILY)
     Route: 065

REACTIONS (12)
  - Dyspnoea [Unknown]
  - Oxygen saturation decreased [Unknown]
  - Diarrhoea [Recovered/Resolved]
  - Diarrhoea [Recovered/Resolved]
  - Abdominal pain upper [Not Recovered/Not Resolved]
  - Feeding disorder [Not Recovered/Not Resolved]
  - Pain [Recovered/Resolved]
  - Headache [Recovered/Resolved]
  - Pruritus [Unknown]
  - Pain [Not Recovered/Not Resolved]
  - Nausea [Not Recovered/Not Resolved]
  - Vomiting [Unknown]

NARRATIVE: CASE EVENT DATE: 20230101
